FAERS Safety Report 12968368 (Version 2)
Quarter: 2016Q4

REPORT INFORMATION
  Report Type: Report from Study
  Country: US (occurrence: US)
  Receive Date: 20161123
  Receipt Date: 20161205
  Transmission Date: 20170207
  Serious: No
  Sender: FDA-Public Use
  Company Number: PHEH2016US030638

PATIENT
  Sex: Female

DRUGS (1)
  1. GILENYA [Suspect]
     Active Substance: FINGOLIMOD HYDROCHLORIDE
     Indication: MULTIPLE SCLEROSIS
     Dosage: 0.5 MG, QD
     Route: 065
     Dates: start: 20160609

REACTIONS (4)
  - Blood glucose increased [Unknown]
  - Malaise [Unknown]
  - Blood pressure increased [Unknown]
  - Drug ineffective [Unknown]
